FAERS Safety Report 8489967-2 (Version None)
Quarter: 2012Q3

REPORT INFORMATION
  Report Type: 
  Country: None (occurrence: None)
  Receive Date: 20120705
  Receipt Date: 20120628
  Transmission Date: 20120928
  Serious: Yes (Hospitalization)
  Sender: FDA-Public Use
  Company Number: PE-B.I. PHARMACEUTICALS,INC./RIDGEFIELD-2012-RA-00172RA

PATIENT
  Age: 32 Year
  Sex: Female

DRUGS (3)
  1. ALBUTEROL SULATE [Concomitant]
     Indication: ASTHMA
     Dosage: 400 MCG
     Route: 055
     Dates: start: 20120501, end: 20120601
  2. BECLOMETASONA [Concomitant]
     Indication: ASTHMA
     Dosage: 500 MCG
     Route: 055
     Dates: start: 20120501, end: 20120601
  3. SPIRIVA [Suspect]
     Indication: ASTHMA
     Dosage: 5 MCG
     Route: 055
     Dates: start: 20120501, end: 20120601

REACTIONS (1)
  - ABORTION SPONTANEOUS [None]
